FAERS Safety Report 4274536-0 (Version None)
Quarter: 2004Q1

REPORT INFORMATION
  Report Type: 
  Country: None (occurrence: None)
  Receive Date: 20040120
  Receipt Date: 20031126
  Transmission Date: 20041129
  Serious: Yes (Death, Hospitalization)
  Sender: FDA-Public Use
  Company Number: US-ROCHE-353124

PATIENT
  Age: 64 Year
  Sex: Male

DRUGS (5)
  1. PEG-INTERFERON ALFA 2A (RO 25-8310) [Suspect]
     Indication: HEPATITIS C
     Route: 058
  2. RIBAVIRIN [Suspect]
     Indication: HEPATITIS C
     Dosage: DAILY DOSE REPORTED AS 200 MG, UNK.
     Route: 048
  3. BOSENTAN [Suspect]
     Indication: PULMONARY FIBROSIS
     Route: 048
     Dates: start: 20031007, end: 20031015
  4. PAXIL [Concomitant]
  5. PAROXETINE HCL [Concomitant]

REACTIONS (5)
  - DRUG HYPERSENSITIVITY [None]
  - INTERSTITIAL LUNG DISEASE [None]
  - PNEUMONIA [None]
  - PULSE ABSENT [None]
  - RESPIRATORY FAILURE [None]
